FAERS Safety Report 13952735 (Version 1)
Quarter: 2017Q3

REPORT INFORMATION
  Report Type: Spontaneous
  Country: US (occurrence: US)
  Receive Date: 20170911
  Receipt Date: 20170911
  Transmission Date: 20171128
  Serious: No
  Sender: FDA-Public Use
  Company Number: US-TEVA-774894USA

PATIENT
  Sex: Male

DRUGS (1)
  1. FENTANYL. [Suspect]
     Active Substance: FENTANYL
     Indication: CANCER PAIN
     Route: 062
     Dates: start: 2015

REACTIONS (4)
  - Product adhesion issue [Unknown]
  - Pruritus generalised [Unknown]
  - Drug administration error [Unknown]
  - Dyspnoea [Unknown]

NARRATIVE: CASE EVENT DATE: 2015
